FAERS Safety Report 9119863 (Version 1)
Quarter: 2013Q1

REPORT INFORMATION
  Report Type: Spontaneous
  Country: NZ (occurrence: None)
  Receive Date: 20130130
  Receipt Date: 20130130
  Transmission Date: 20140127
  Serious: Yes (Other)
  Sender: FDA-Public Use
  Company Number: VAL_01267_2013

PATIENT
  Age: 60 Year
  Sex: Male

DRUGS (1)
  1. LOPRESSOR [Suspect]
     Indication: PRODUCT USED FOR UNKNOWN INDICATION
     Dosage: (DF  ORAL)?(UNKNOWN)
     Route: 048

REACTIONS (3)
  - Angina pectoris [None]
  - Lethargy [None]
  - Dizziness [None]
